FAERS Safety Report 5896747-0 (Version None)
Quarter: 2008Q3

REPORT INFORMATION
  Report Type: 
  Country: None (occurrence: None)
  Receive Date: 20080924
  Receipt Date: 20070810
  Transmission Date: 20090109
  Serious: Yes (Other)
  Sender: FDA-Public Use
  Company Number: US-ASTRAZENECA-2007UW24463

PATIENT
  Age: 36 Year
  Sex: Male

DRUGS (2)
  1. SEROQUEL [Suspect]
     Indication: BIPOLAR DISORDER
     Dosage: 25 MG - 200 MG
     Route: 048
     Dates: start: 20040901
  2. RISPERDAL [Concomitant]
     Dosage: 2 MG - 4 MG
     Route: 048
     Dates: start: 19970101

REACTIONS (2)
  - HYPERGLYCAEMIA [None]
  - PANCREATITIS [None]
